FAERS Safety Report 12146373 (Version 1)
Quarter: 2016Q1

REPORT INFORMATION
  Report Type: Spontaneous
  Country: US (occurrence: US)
  Receive Date: 20160304
  Receipt Date: 20160304
  Transmission Date: 20160526
  Serious: No
  Sender: FDA-Public Use
  Company Number: US-SHIRE-US201602645

PATIENT
  Sex: Female

DRUGS (2)
  1. ARMOUR THYROID [Concomitant]
     Active Substance: THYROID, PORCINE
     Indication: THYROID DISORDER
     Dosage: UNK, UNKNOWN
     Route: 065
  2. VYVANSE [Suspect]
     Active Substance: LISDEXAMFETAMINE DIMESYLATE
     Indication: BINGE EATING
     Dosage: UNK, UNKNOWN
     Route: 048

REACTIONS (6)
  - Bedridden [Unknown]
  - Feeling of despair [Unknown]
  - Blood pressure increased [Unknown]
  - Anxiety [Unknown]
  - Asthenia [Unknown]
  - Therapeutic response unexpected [Recovered/Resolved]
